FAERS Safety Report 17643249 (Version 1)
Quarter: 2020Q2

REPORT INFORMATION
  Report Type: Spontaneous
  Country: US (occurrence: US)
  Receive Date: 20200407
  Receipt Date: 20200407
  Transmission Date: 20200713
  Serious: Yes (Hospitalization)
  Sender: FDA-Public Use
  Company Number: None

PATIENT
  Age: 71 Year
  Sex: Male
  Weight: 80.4 kg

DRUGS (13)
  1. ELIQUIS [Concomitant]
     Active Substance: APIXABAN
     Dates: start: 20191218
  2. IBRUTINIB [Suspect]
     Active Substance: IBRUTINIB
     Indication: CHRONIC LYMPHOCYTIC LEUKAEMIA
     Route: 048
     Dates: start: 20190416, end: 20200221
  3. APPLE CIDER VINEGAR CAPSULE [Concomitant]
     Dates: start: 20170124
  4. SUPER GREEN POWDER MIX [Concomitant]
  5. ACIDOPHILUS PROBIOTIC CAPSURE [Concomitant]
     Dates: start: 20170124
  6. CVS ZINC 50 MG ORAL TABLET [Concomitant]
     Dates: start: 20121219
  7. CVS OMEGA-3 KRILL OIL CAPSULE [Concomitant]
     Dates: start: 20151222
  8. VITAMIN D TABLET [Concomitant]
     Dates: start: 20140213
  9. TUSSIONEX PENNEKINETIC ER [Concomitant]
     Dates: start: 20191029
  10. CVS VITAMIN C 1000 MG ORAL TABLET [Concomitant]
  11. OMEPERAZOLE 20MG [Concomitant]
     Dates: start: 20190522
  12. METFORMIN 1000MG EXTENDED RELEASE [Concomitant]
     Dates: start: 20180110
  13. CVS MAGNESIUM TABLET [Concomitant]
     Dates: start: 20160328

REACTIONS (2)
  - Atrial fibrillation [None]
  - Chest pain [None]

NARRATIVE: CASE EVENT DATE: 20191207
